FAERS Safety Report 6999869-6 (Version None)
Quarter: 2010Q3

REPORT INFORMATION
  Report Type: 
  Country: None (occurrence: None)
  Receive Date: 20100920
  Receipt Date: 20070919
  Transmission Date: 20110219
  Serious: Yes (Other)
  Sender: FDA-Public Use
  Company Number: US-ASTRAZENECA-2007UW10886

PATIENT
  Age: 13599 Day
  Sex: Female
  Weight: 102.5 kg

DRUGS (10)
  1. SEROQUEL [Suspect]
     Indication: AFFECTIVE DISORDER
     Dosage: 100 MG-200 MG
     Route: 048
     Dates: start: 20030529
  2. SEROQUEL [Suspect]
     Route: 048
     Dates: start: 20060707, end: 20060101
  3. PROLIXIN [Concomitant]
     Dates: start: 20041019
  4. RISPERDAL [Concomitant]
     Dates: start: 20060101
  5. DEPAKOTE [Concomitant]
     Indication: AFFECTIVE DISORDER
     Dosage: 500 MG-3500 MG
     Route: 048
     Dates: start: 20030529
  6. ACTOS [Concomitant]
     Indication: DIABETES MELLITUS
     Route: 048
     Dates: start: 20060407
  7. DIPHENHYDRAMINE HCL [Concomitant]
     Indication: SLEEP DISORDER
     Route: 048
     Dates: start: 20060424
  8. GLUCOPHAGE [Concomitant]
     Indication: DIABETES MELLITUS
     Dosage: 1000 MG-2000 MG
     Route: 048
     Dates: start: 20001215
  9. ZANTAC [Concomitant]
     Indication: DYSPEPSIA
     Dates: start: 20060424
  10. FLUPHENAZINE HCL [Concomitant]
     Dosage: 2.5 MG THREE TABLET AT NIGHT
     Route: 048
     Dates: start: 20001218

REACTIONS (3)
  - DIABETES MELLITUS [None]
  - DIABETES MELLITUS INADEQUATE CONTROL [None]
  - TYPE 1 DIABETES MELLITUS [None]
